FAERS Safety Report 9932047 (Version 1)
Quarter: 2014Q1

REPORT INFORMATION
  Report Type: Spontaneous
  Country: US (occurrence: None)
  Receive Date: 20140226
  Receipt Date: 20140226
  Transmission Date: 20141002
  Serious: No
  Sender: FDA-Public Use
  Company Number: SYM-2013-12636

PATIENT
  Age: 15 Year
  Sex: Female
  Weight: 49.9 kg

DRUGS (2)
  1. BENZACLIN [Suspect]
     Indication: ACNE
     Dosage: BEDTIME,
     Route: 061
     Dates: start: 201309, end: 201309
  2. TRETINOIN [Suspect]
     Indication: ACNE
     Dosage: BEDTIME
     Dates: start: 201309

REACTIONS (4)
  - Application site swelling [None]
  - Application site erythema [None]
  - Application site exfoliation [None]
  - Hypersensitivity [None]
